FAERS Safety Report 7577337-0 (Version None)
Quarter: 2011Q2

REPORT INFORMATION
  Report Type: 
  Country: None (occurrence: None)
  Receive Date: 20110628
  Receipt Date: 20110620
  Transmission Date: 20111010
  Serious: Yes (Hospitalization, Other)
  Sender: FDA-Public Use
  Company Number: US-BAYER-201034772NA

PATIENT
  Age: 26 Year
  Sex: Female
  Weight: 113.38 kg

DRUGS (8)
  1. LEVOTHYROXINE SODIUM [Concomitant]
     Dosage: 75 UNK, UNK
     Route: 048
  2. SULFAMETHOXAZOLE [Concomitant]
     Route: 048
  3. MUPIROCIN [Concomitant]
     Dosage: 2 %, UNK
     Route: 061
  4. PHENTERMINE [Concomitant]
     Dosage: 37.5 MG, UNK
     Route: 048
  5. LEVAQUIN [Concomitant]
     Dosage: 500 MG, UNK
     Route: 048
  6. NEXIUM [Concomitant]
     Dosage: 40 MG, UNK
     Route: 048
  7. YAZ [Suspect]
     Indication: PRODUCT USED FOR UNKNOWN INDICATION
     Dosage: UNK UNK, QD
     Route: 048
     Dates: start: 20081022, end: 20081118
  8. METHYLPREDNISOLONE [Concomitant]
     Dosage: 4 MG, UNK
     Route: 048

REACTIONS (7)
  - PAIN IN EXTREMITY [None]
  - BILE DUCT STONE [None]
  - CHOLECYSTITIS ACUTE [None]
  - DISABILITY [None]
  - DEEP VEIN THROMBOSIS [None]
  - HAEMORRHAGE INTRACRANIAL [None]
  - CHOLECYSTECTOMY [None]
